FAERS Safety Report 6921283-X (Version None)
Quarter: 2010Q3

REPORT INFORMATION
  Report Type: 
  Country: None (occurrence: None)
  Receive Date: 20100812
  Receipt Date: 20100806
  Transmission Date: 20110219
  Serious: Yes (Hospitalization)
  Sender: FDA-Public Use
  Company Number: B0599438A

PATIENT
  Age: 55 Year
  Sex: Female
  Weight: 67 kg

DRUGS (2)
  1. TOPOTECAN [Suspect]
     Dosage: 1.36MG PER DAY
     Route: 042
     Dates: start: 20091013, end: 20091015
  2. CARBOPLATIN [Suspect]
     Dosage: 701MG CYCLIC
     Route: 042
     Dates: start: 20091015, end: 20091015

REACTIONS (7)
  - ASCITES [None]
  - CONSTIPATION [None]
  - ILEUS [None]
  - NAUSEA [None]
  - PANCYTOPENIA [None]
  - SUBILEUS [None]
  - VOMITING [None]
